FAERS Safety Report 23410236 (Version 1)
Quarter: 2024Q1

REPORT INFORMATION
  Report Type: Report from Study
  Country: CA (occurrence: CA)
  Receive Date: 20240117
  Receipt Date: 20240117
  Transmission Date: 20240410
  Serious: Yes (Other)
  Sender: FDA-Public Use
  Company Number: CA-ABBVIE-5587786

PATIENT
  Age: 44 Year
  Sex: Female

DRUGS (1)
  1. RINVOQ [Suspect]
     Active Substance: UPADACITINIB
     Indication: Crohn^s disease
     Dosage: FORM STRENGTH: 30 MG
     Route: 048
     Dates: start: 20221118

REACTIONS (4)
  - Cholecystectomy [Unknown]
  - Cholelithiasis [Unknown]
  - COVID-19 [Unknown]
  - Fungal infection [Unknown]

NARRATIVE: CASE EVENT DATE: 20230201
